FAERS Safety Report 17805561 (Version 13)
Quarter: 2022Q2

REPORT INFORMATION
  Report Type: Spontaneous
  Country: CA (occurrence: CA)
  Receive Date: 20200519
  Receipt Date: 20220526
  Transmission Date: 20220720
  Serious: Yes (Hospitalization, Other)
  Sender: FDA-Public Use
  Company Number: CA-BIOMARINAP-CA-2020-130173

PATIENT
  Age: 25 Year
  Sex: Male
  Weight: 77.551 kg

DRUGS (2)
  1. LARONIDASE [Suspect]
     Active Substance: LARONIDASE
     Indication: Mucopolysaccharidosis I
     Dosage: 42.46 MG, QW
     Route: 041
     Dates: start: 20120221
  2. LARONIDASE [Suspect]
     Active Substance: LARONIDASE
     Dosage: 43.5 MG, QW
     Route: 041

REACTIONS (14)
  - Seizure [Recovered/Resolved]
  - Spinal cord compression [Unknown]
  - Adverse event [Unknown]
  - Syncope [Recovered/Resolved]
  - Feeling abnormal [Recovering/Resolving]
  - Weight decreased [Recovered/Resolved]
  - Decreased appetite [Unknown]
  - Stress [Recovering/Resolving]
  - Insomnia [Recovering/Resolving]
  - Pain [Recovering/Resolving]
  - Fatigue [Recovering/Resolving]
  - Dehydration [Recovering/Resolving]
  - Poor venous access [Recovering/Resolving]
  - Hypotension [Recovering/Resolving]

NARRATIVE: CASE EVENT DATE: 20200901
